FAERS Safety Report 4364455-3 (Version None)
Quarter: 2004Q2

REPORT INFORMATION
  Report Type: 
  Country: None (occurrence: None)
  Receive Date: 20040514
  Receipt Date: 20040213
  Transmission Date: 20050107
  Serious: Yes (Hospitalization)
  Sender: FDA-Public Use
  Company Number: 04-047

PATIENT
  Age: 62 Year
  Sex: Male
  Weight: 79.3795 kg

DRUGS (2)
  1. TORSEMIDE [Suspect]
     Dosage: 2 X A DAY, ORAL
     Route: 048
     Dates: end: 20031210
  2. LASIX [Concomitant]

REACTIONS (2)
  - OEDEMA [None]
  - SWELLING [None]
